FAERS Safety Report 4557230-8 (Version None)
Quarter: 2005Q1

REPORT INFORMATION
  Report Type: 
  Country: None (occurrence: None)
  Receive Date: 20050120
  Receipt Date: 20041224
  Transmission Date: 20050727
  Serious: Yes (Hospitalization)
  Sender: FDA-Public Use
  Company Number: JP-GLAXOSMITHKLINE-B0362985A

PATIENT
  Age: 63 Year
  Sex: Female

DRUGS (6)
  1. EPIVIR [Suspect]
     Indication: ACQUIRED IMMUNODEFICIENCY SYNDROME
     Dosage: 150MG TWICE PER DAY
     Route: 048
     Dates: start: 20020423
  2. VIDEX EC [Suspect]
     Indication: ACQUIRED IMMUNODEFICIENCY SYNDROME
     Dosage: 250MG PER DAY
     Route: 048
     Dates: start: 20010417
  3. STOCRIN [Suspect]
     Indication: ACQUIRED IMMUNODEFICIENCY SYNDROME
     Dosage: 600MG PER DAY
     Route: 048
     Dates: start: 20001019
  4. GASTER [Concomitant]
     Indication: GASTRITIS
     Dosage: 10MG TWICE PER DAY
     Route: 048
     Dates: start: 20030401
  5. AMOBAN [Concomitant]
     Indication: INSOMNIA
     Dosage: 7.5MG PER DAY
     Route: 048
     Dates: start: 20030401
  6. PURSENNID [Concomitant]
     Indication: CONSTIPATION
     Dosage: 24MG PER DAY
     Route: 048
     Dates: start: 20030605

REACTIONS (3)
  - DIABETES MELLITUS [None]
  - FAT ATROPHY [None]
  - HYPERLIPIDAEMIA [None]
